FAERS Safety Report 23625512 (Version 1)
Quarter: 2024Q1

REPORT INFORMATION
  Report Type: Spontaneous
  Country: VN (occurrence: None)
  Receive Date: 20240313
  Receipt Date: 20240313
  Transmission Date: 20240410
  Serious: Yes (Other)
  Sender: FDA-Public Use
  Company Number: VN-ROCHE-3511589

PATIENT
  Age: 15 Month
  Sex: Male

DRUGS (1)
  1. HEMLIBRA [Suspect]
     Active Substance: EMICIZUMAB-KXWH
     Indication: Haemophilia
     Dosage: 3 MG/KG LOADING DOSE AND MAINTAINANCE DOSE 6 MG/KG
     Route: 065

REACTIONS (5)
  - Cerebral haemorrhage [Unknown]
  - Contusion [Unknown]
  - Injury [Unknown]
  - Multiple injuries [Unknown]
  - Fall [Unknown]
